FAERS Safety Report 7040373-7 (Version None)
Quarter: 2010Q4

REPORT INFORMATION
  Report Type: 
  Country: None (occurrence: None)
  Receive Date: 20101008
  Receipt Date: 20101008
  Transmission Date: 20110411
  Serious: Yes (Hospitalization)
  Sender: FDA-Public Use
  Company Number: None

PATIENT
  Sex: Female
  Weight: 142.1 kg

DRUGS (2)
  1. TAXOL [Suspect]
     Dosage: 231 MG
  2. CARBOPLATIN [Suspect]

REACTIONS (4)
  - BACK PAIN [None]
  - CHEST DISCOMFORT [None]
  - DYSPNOEA [None]
  - SINUS BRADYCARDIA [None]
